FAERS Safety Report 5128361-9 (Version None)
Quarter: 2006Q4

REPORT INFORMATION
  Report Type: 
  Country: None (occurrence: None)
  Receive Date: 20061017
  Receipt Date: 20061006
  Transmission Date: 20070319
  Serious: Yes (Hospitalization)
  Sender: FDA-Public Use
  Company Number: US-JNJFOC-20061001926

PATIENT
  Sex: Female
  Weight: 81.65 kg

DRUGS (2)
  1. DURAGESIC-100 [Suspect]
     Indication: BACK PAIN
     Route: 062
  2. ACTIQ [Suspect]
     Indication: BACK PAIN
     Route: 048

REACTIONS (5)
  - ABDOMINAL PAIN UPPER [None]
  - AMNESIA [None]
  - CONVULSION [None]
  - DEHYDRATION [None]
  - VOMITING [None]
